FAERS Safety Report 15050492 (Version 8)
Quarter: 2018Q4

REPORT INFORMATION
  Report Type: Spontaneous
  Country: CA (occurrence: CA)
  Receive Date: 20180622
  Receipt Date: 20181110
  Transmission Date: 20190204
  Serious: Yes (Hospitalization, Other)
  Sender: FDA-Public Use
  Company Number: CA-CELLTRION INC.-2018CA020830

PATIENT

DRUGS (22)
  1. INFLECTRA [Suspect]
     Active Substance: INFLIXIMAB-DYYB
     Dosage: 600 MG (10 MG/KG) RELOAD ON WEEK0, WEEK 2,6, THEN EVERY 8 WEEKS
     Route: 042
     Dates: start: 20180714
  2. INFLECTRA [Suspect]
     Active Substance: INFLIXIMAB-DYYB
     Dosage: 600 MG (10 MG/KG) RELOAD ON WEEK0, WEEK 2,6, THEN EVERY 8 WEEKS
     Route: 042
     Dates: start: 20180827
  3. METHOTREXATE. [Concomitant]
     Active Substance: METHOTREXATE
     Dosage: UNK
  4. CITALOPRAM [Concomitant]
     Active Substance: CITALOPRAM HYDROBROMIDE
     Dosage: UNK
     Dates: start: 2018
  5. MELATONIN                          /07129401/ [Concomitant]
     Active Substance: CALCIUM\IRON\MELATONIN\PYRIDOXINE HYDROCHLORIDE
     Dosage: UNK
     Dates: start: 2018
  6. INFLECTRA [Suspect]
     Active Substance: INFLIXIMAB-DYYB
     Dosage: 600 MG (10 MG/KG) RELOAD ON WEEK0, WEEK 2,6, THEN EVERY 8 WEEKS
     Route: 042
     Dates: start: 20180728
  7. ASACOL [Concomitant]
     Active Substance: MESALAMINE
     Dosage: UNK
  8. FOLIC ACID. [Concomitant]
     Active Substance: FOLIC ACID
     Dosage: UNK
     Dates: start: 2018
  9. INFLECTRA [Suspect]
     Active Substance: INFLIXIMAB-DYYB
     Indication: CROHN^S DISEASE
     Dosage: 300 MG, CYCLIC (EVERY 6 WEEKS, THEN EVERY 8 WEEKS)
     Route: 042
     Dates: start: 20180515, end: 20180527
  10. VITAMIN D [Concomitant]
     Active Substance: CHOLECALCIFEROL
     Dosage: UNK
     Dates: start: 2018
  11. POTASSIUM CHLORIDE. [Concomitant]
     Active Substance: POTASSIUM CHLORIDE
     Dosage: UNK
     Dates: start: 2018
  12. INFLECTRA [Suspect]
     Active Substance: INFLIXIMAB-DYYB
     Dosage: 600 MG (10 MG/KG) RELOAD ON WEEK0, WEEK 2,6, THEN EVERY 8 WEEKS
     Route: 042
     Dates: start: 20180827
  13. METRONIDAZOLE                      /00012502/ [Concomitant]
     Dosage: UNK
  14. PANTOPRAZOLE [Concomitant]
     Active Substance: PANTOPRAZOLE
     Dosage: UNK
     Dates: start: 2018
  15. LASIX [Concomitant]
     Active Substance: FUROSEMIDE
     Dosage: UNK
     Dates: start: 2018
  16. HYDROMORPHONE                      /00080902/ [Concomitant]
     Active Substance: HYDROMORPHONE HYDROCHLORIDE
     Dosage: UNK
  17. CALCIUM CARBONATE. [Concomitant]
     Active Substance: CALCIUM CARBONATE
     Dosage: UNK
     Dates: start: 2018
  18. MORPHINE SULFATE. [Concomitant]
     Active Substance: MORPHINE SULFATE
     Dosage: UNK
     Dates: start: 2018
  19. CEFTRIAXONE                        /00672202/ [Concomitant]
     Active Substance: CEFTRIAXONE
     Dosage: UNK
  20. LYRICA [Concomitant]
     Active Substance: PREGABALIN
     Dosage: UNK
  21. BUDESONIDE. [Concomitant]
     Active Substance: BUDESONIDE
     Dosage: UNK
     Dates: start: 2018
  22. POLYETHYLENE GLYCOL 3350 AND ELECTROLYTES [Concomitant]
     Active Substance: POLYETHYLENE GLYCOL 3350\POTASSIUM CHLORIDE\SODIUM BICARBONATE\SODIUM CHLORIDE\SODIUM SULFATE ANHYDROUS
     Dosage: UNK
     Dates: start: 2018

REACTIONS (22)
  - Prescribed overdose [Unknown]
  - Diplopia [Unknown]
  - Drug level below therapeutic [Unknown]
  - Intestinal perforation [Unknown]
  - Intestinal obstruction [Unknown]
  - Back pain [Unknown]
  - Asthenia [Unknown]
  - Abdominal pain [Unknown]
  - Abdominal pain upper [Unknown]
  - Compression fracture [Unknown]
  - Nausea [Unknown]
  - Malaise [Not Recovered/Not Resolved]
  - Bipolar disorder [Unknown]
  - Product use issue [Unknown]
  - Aphthous ulcer [Unknown]
  - Condition aggravated [Unknown]
  - Suicidal behaviour [Unknown]
  - Fatigue [Unknown]
  - Depression [Unknown]
  - Abscess intestinal [Unknown]
  - Generalised oedema [Recovering/Resolving]
  - Hypoalbuminaemia [Recovering/Resolving]

NARRATIVE: CASE EVENT DATE: 20180611
